FAERS Safety Report 25722091 (Version 3)
Quarter: 2025Q3

REPORT INFORMATION
  Report Type: Spontaneous
  Country: TW (occurrence: TW)
  Receive Date: 20250825
  Receipt Date: 20250903
  Transmission Date: 20251020
  Serious: Yes (Other)
  Sender: PFIZER
  Company Number: TW-PFIZER INC-2007078042

PATIENT
  Age: 53 Year
  Sex: Female

DRUGS (1)
  1. LINEZOLID [Suspect]
     Active Substance: LINEZOLID
     Indication: Osteomyelitis
     Dosage: 600 MG, 2X/DAY, EVERY 12 HOURS
     Route: 048
     Dates: start: 200502, end: 200508

REACTIONS (7)
  - Neuropathy peripheral [Recovered/Resolved]
  - Small fibre neuropathy [Recovered/Resolved]
  - Peripheral nerve destruction [Recovered/Resolved]
  - Nerve degeneration [Recovered/Resolved]
  - Neuralgia [Recovered/Resolved]
  - Incorrect product administration duration [Unknown]
  - Off label use [Unknown]

NARRATIVE: CASE EVENT DATE: 20050201
